FAERS Safety Report 12858349 (Version 2)
Quarter: 2016Q4

REPORT INFORMATION
  Report Type: Report from Study
  Country: None (occurrence: BR)
  Receive Date: 20161018
  Receipt Date: 20161018
  Transmission Date: 20170207
  Serious: Yes (Hospitalization)
  Sender: FDA-Public Use
  Company Number: BR-ABBVIE-16K-020-1751539-00

PATIENT
  Age: 85 Year
  Sex: Female
  Weight: 33 kg

DRUGS (3)
  1. NIFEDIPINE. [Concomitant]
     Active Substance: NIFEDIPINE
     Indication: HYPERTENSION
     Route: 048
  2. HUMIRA [Suspect]
     Active Substance: ADALIMUMAB
     Indication: RHEUMATOID ARTHRITIS
     Route: 058
     Dates: start: 20101015, end: 201609
  3. ECOFILM [Concomitant]
     Indication: DRY EYE
     Dosage: 1 DROP IN EACH EYE
     Route: 050

REACTIONS (9)
  - Pneumonia [Unknown]
  - Influenza [Recovering/Resolving]
  - Hospitalisation [Recovered/Resolved]
  - Urinary tract infection [Recovered/Resolved]
  - Eye infection [Recovering/Resolving]
  - Chronic obstructive pulmonary disease [Not Recovered/Not Resolved]
  - Pneumonia [Recovered/Resolved]
  - Peripheral swelling [Recovering/Resolving]
  - Eye pain [Recovering/Resolving]

NARRATIVE: CASE EVENT DATE: 2011
